FAERS Safety Report 17816030 (Version 2)
Quarter: 2021Q4

REPORT INFORMATION
  Report Type: Report from Study
  Country: US (occurrence: US)
  Receive Date: 20200522
  Receipt Date: 20211018
  Transmission Date: 20220303
  Serious: Yes (Hospitalization)
  Sender: FDA-Public Use
  Company Number: US-ACCORD-182742

PATIENT
  Age: 83 Year
  Sex: Male
  Weight: 86.2 kg

DRUGS (4)
  1. CLOZAPINE [Suspect]
     Active Substance: CLOZAPINE
     Indication: Hallucination
     Route: 048
     Dates: start: 20200413
  2. QUETIAPINE [Concomitant]
     Active Substance: QUETIAPINE
     Indication: Psychotic disorder
     Route: 048
  3. CARBIDOPA\LEVODOPA [Concomitant]
     Active Substance: CARBIDOPA\LEVODOPA
     Indication: Parkinsonism
     Dosage: 10-100MG TAB?2 TABS AT 8AM, 2 TABS AT 12PM, 2 TABS AT 4PM, 1.5 TABS AT 8PM
     Route: 048
  4. LEVOTHYROXINE [Concomitant]
     Active Substance: LEVOTHYROXINE
     Indication: Hypothyroidism
     Route: 048

REACTIONS (6)
  - Neutrophilia [Recovered/Resolved]
  - Thrombosis [Unknown]
  - Fall [Unknown]
  - Off label use [Unknown]
  - Mobility decreased [Unknown]
  - Deep vein thrombosis [Recovering/Resolving]

NARRATIVE: CASE EVENT DATE: 20200503
